FAERS Safety Report 10671276 (Version 1)
Quarter: 2014Q4

REPORT INFORMATION
  Report Type: Spontaneous
  Country: US (occurrence: None)
  Receive Date: 20141222
  Receipt Date: 20141222
  Transmission Date: 20150529
  Serious: Yes (Other)
  Sender: FDA-Public Use
  Company Number: None

PATIENT
  Age: 38 Year
  Sex: Female
  Weight: 81.65 kg

DRUGS (1)
  1. RIVAROXABAN [Suspect]
     Active Substance: RIVAROXABAN
     Indication: HYPERCOAGULATION
     Dosage: 1 PILL, ONCE DAILY
     Route: 048

REACTIONS (6)
  - Menorrhagia [None]
  - General symptom [None]
  - Blood test abnormal [None]
  - Mood swings [None]
  - Premenstrual syndrome [None]
  - Muscle spasms [None]

NARRATIVE: CASE EVENT DATE: 20141219
